FAERS Safety Report 9118241 (Version 1)
Quarter: 2013Q1

REPORT INFORMATION
  Report Type: Spontaneous
  Country: US (occurrence: US)
  Receive Date: 20130128
  Receipt Date: 20130128
  Transmission Date: 20140127
  Serious: No
  Sender: FDA-Public Use
  Company Number: US-009507513-1301USA009508

PATIENT
  Age: 32 Year
  Sex: Female
  Weight: 69.84 kg

DRUGS (2)
  1. NUVARING [Suspect]
     Indication: CONTRACEPTION
     Dosage: UNK
     Route: 067
     Dates: start: 20121220
  2. VALTREX [Concomitant]

REACTIONS (1)
  - Metrorrhagia [Not Recovered/Not Resolved]
